FAERS Safety Report 10994188 (Version 1)
Quarter: 2015Q2

REPORT INFORMATION
  Report Type: Spontaneous
  Country: US (occurrence: None)
  Receive Date: 20150406
  Receipt Date: 20150406
  Transmission Date: 20150821
  Serious: No
  Sender: FDA-Public Use
  Company Number: None

PATIENT
  Age: 62 Year
  Sex: Female
  Weight: 77.11 kg

DRUGS (4)
  1. DELZICOL [Concomitant]
     Active Substance: MESALAMINE
  2. HUMIRA [Suspect]
     Active Substance: ADALIMUMAB
     Indication: CROHN^S DISEASE
     Dosage: 1 PEN INJECTION EVERY 2 WEEKS, GIVEN INTO/UNDER THE SKIN
     Route: 058
     Dates: start: 20140612, end: 20150212
  3. FOLIC ACID. [Concomitant]
     Active Substance: FOLIC ACID
  4. AZATHIOPRINE. [Concomitant]
     Active Substance: AZATHIOPRINE

REACTIONS (1)
  - Tinnitus [None]

NARRATIVE: CASE EVENT DATE: 20150226
